FAERS Safety Report 7525285-4 (Version None)
Quarter: 2011Q2

REPORT INFORMATION
  Report Type: 
  Country: None (occurrence: None)
  Receive Date: 20110606
  Receipt Date: 20110601
  Transmission Date: 20111010
  Serious: Yes (Other)
  Sender: FDA-Public Use
  Company Number: GB-PFIZER INC-2011119335

PATIENT
  Age: 22 Year
  Sex: Female
  Weight: 84 kg

DRUGS (8)
  1. AMPICILLIN SODIUM/SULBACTAM SODIUM [Concomitant]
     Dosage: UNK
     Dates: start: 20110216, end: 20110223
  2. DICLOFENAC SODIUM [Concomitant]
     Dosage: UNK
     Dates: start: 20110214, end: 20110221
  3. LACTULOSE [Concomitant]
     Dosage: UNK
     Dates: start: 20110216, end: 20110226
  4. VARENICLINE TARTRATE [Suspect]
     Dosage: UNK
  5. ALUMINIUM CHLORIDE HEXAHYDRATE [Concomitant]
     Dosage: UNK
     Dates: start: 20110430
  6. CODEINE PHOSPHATE [Concomitant]
     Dosage: UNK
     Dates: start: 20110218, end: 20110225
  7. MACROGOL [Concomitant]
     Dosage: UNK
     Dates: start: 20110216, end: 20110318
  8. YASMIN [Concomitant]
     Dosage: UNK
     Dates: start: 20110430

REACTIONS (3)
  - VOMITING [None]
  - PAIN [None]
  - ABDOMINAL PAIN UPPER [None]
